FAERS Safety Report 13896787 (Version 1)
Quarter: 2017Q3

REPORT INFORMATION
  Report Type: Spontaneous
  Country: US (occurrence: US)
  Receive Date: 20170823
  Receipt Date: 20170823
  Transmission Date: 20171127
  Serious: Yes (Hospitalization, Other)
  Sender: FDA-Public Use
  Company Number: US-SEPTODONT-201704189

PATIENT
  Age: 35 Year
  Sex: Male

DRUGS (6)
  1. GABAPENTIN. [Concomitant]
     Active Substance: GABAPENTIN
  2. SODIUM HYPOCHLORITE [Concomitant]
     Active Substance: SODIUM HYPOCHLORITE
     Dosage: INTERMITTENTLY IRRIGATED CANAL
     Dates: start: 20170724, end: 20170724
  3. BENZOCAINE. [Suspect]
     Active Substance: BENZOCAINE
     Route: 061
     Dates: start: 20170724, end: 20170724
  4. CALCIUM HYDROXIDE [Concomitant]
     Active Substance: CALCIUM HYDROXIDE
     Dosage: PLACED INSIDE OF CANAL
     Dates: start: 20170724, end: 20170724
  5. NAPROXEN. [Concomitant]
     Active Substance: NAPROXEN
  6. SEPTOCAINE AND EPINEPHRINE [Suspect]
     Active Substance: ARTICAINE HYDROCHLORIDE\EPINEPHRINE BITARTRATE
     Indication: LOCAL ANAESTHESIA
     Dosage: ADMINISTERED VIA LI WITH PATTERSON PLASTIC HUB NEEDLE 27G
     Route: 004
     Dates: start: 20170724, end: 20170724

REACTIONS (7)
  - Swelling face [Recovered/Resolved]
  - Discomfort [Recovered/Resolved]
  - Hypersensitivity [Recovered/Resolved]
  - Blood pressure increased [Recovered/Resolved]
  - Anaphylactic reaction [Recovered/Resolved]
  - Emotional distress [Recovered/Resolved]
  - Eye swelling [Recovered/Resolved]

NARRATIVE: CASE EVENT DATE: 20170724
